FAERS Safety Report 7600331-8 (Version None)
Quarter: 2011Q2

REPORT INFORMATION
  Report Type: 
  Country: None (occurrence: None)
  Receive Date: 20110629
  Receipt Date: 20110616
  Transmission Date: 20111010
  Serious: Yes (Hospitalization, Other)
  Sender: FDA-Public Use
  Company Number: 2010MA005103

PATIENT
  Sex: Female
  Weight: 73.9363 kg

DRUGS (27)
  1. CLONAZEPAM [Concomitant]
  2. ZOLOFT [Concomitant]
  3. INDOMETHACIN [Concomitant]
  4. PREMARIN [Concomitant]
  5. NEXIUM [Concomitant]
  6. DARVOCET [Concomitant]
  7. COUMADIN [Concomitant]
  8. CARBIDOPA AND LEVODOPA [Concomitant]
  9. CLONAZEPAM [Concomitant]
  10. DYAZIDE [Concomitant]
  11. PROPOXYPHENE NAPSYLATE [Concomitant]
  12. PRILOSEC [Concomitant]
  13. BACTRIM [Concomitant]
  14. ZITHROMAX [Concomitant]
  15. IODINE [Concomitant]
  16. SERTRALINE HYDROCHLORIDE [Concomitant]
  17. METOCLOPRAMIDE [Suspect]
     Indication: GASTROOESOPHAGEAL REFLUX DISEASE
     Dosage: 10 MG; QID; PO
     Route: 048
     Dates: start: 19991001, end: 20050622
  18. LIPITOR [Concomitant]
  19. SOMA [Concomitant]
  20. LASIX [Concomitant]
  21. MICRO-K [Concomitant]
  22. METOPROLOL TARTRATE [Concomitant]
  23. SPIRONOLACTONE [Concomitant]
  24. MEGACE [Concomitant]
  25. LEVOTHYROXINE [Concomitant]
  26. MECLIZINE [Concomitant]
  27. ETODOLAC [Concomitant]

REACTIONS (69)
  - RAYNAUD'S PHENOMENON [None]
  - VOMITING [None]
  - ACTIVITIES OF DAILY LIVING IMPAIRED [None]
  - BRADYPHRENIA [None]
  - DEPRESSED MOOD [None]
  - HYPOXIA [None]
  - BRONCHIECTASIS [None]
  - INCORRECT DRUG ADMINISTRATION DURATION [None]
  - TARDIVE DYSKINESIA [None]
  - BARRETT'S OESOPHAGUS [None]
  - VENTRICULAR TACHYCARDIA [None]
  - DYSPNOEA [None]
  - FALL [None]
  - CHEST PAIN [None]
  - FACIAL PAIN [None]
  - ARTHRALGIA [None]
  - WHEEZING [None]
  - STOMATITIS [None]
  - TRICUSPID VALVE INCOMPETENCE [None]
  - FATIGUE [None]
  - OESOPHAGEAL DISORDER [None]
  - VERTIGO [None]
  - CHILLS [None]
  - PERIPHERAL SENSORY NEUROPATHY [None]
  - GLOMERULAR FILTRATION RATE DECREASED [None]
  - HYPOKALAEMIA [None]
  - NAUSEA [None]
  - SINUSITIS [None]
  - DIZZINESS [None]
  - DIZZINESS POSTURAL [None]
  - AGITATION [None]
  - INTERVERTEBRAL DISC DEGENERATION [None]
  - TREMOR [None]
  - COUGH [None]
  - HAEMATURIA [None]
  - ANXIETY [None]
  - PARAESTHESIA [None]
  - CHEST DISCOMFORT [None]
  - SOMNOLENCE [None]
  - RASH PRURITIC [None]
  - BLOOD GLUCOSE INCREASED [None]
  - BLOOD POTASSIUM INCREASED [None]
  - VENTRICULAR FIBRILLATION [None]
  - HEAD INJURY [None]
  - BLUNTED AFFECT [None]
  - BALANCE DISORDER [None]
  - MALAISE [None]
  - INSOMNIA [None]
  - FLAT AFFECT [None]
  - PULMONARY FUNCTION TEST ABNORMAL [None]
  - DYSPHAGIA [None]
  - GAIT DISTURBANCE [None]
  - CREST SYNDROME [None]
  - PARKINSONISM [None]
  - SCLERODERMA [None]
  - BRADYKINESIA [None]
  - HYPOAESTHESIA [None]
  - DEPRESSION [None]
  - EXTRAPYRAMIDAL DISORDER [None]
  - EMOTIONAL DISORDER [None]
  - ECONOMIC PROBLEM [None]
  - SUDDEN DEATH [None]
  - OXYGEN SATURATION DECREASED [None]
  - MAJOR DEPRESSION [None]
  - MYALGIA [None]
  - STRESS [None]
  - MUSCLE RIGIDITY [None]
  - INCONTINENCE [None]
  - FIBROSIS [None]
